FAERS Safety Report 18059449 (Version 1)
Quarter: 2020Q3

REPORT INFORMATION
  Report Type: Spontaneous
  Country: US (occurrence: US)
  Receive Date: 20200723
  Receipt Date: 20200723
  Transmission Date: 20201103
  Serious: Yes (Hospitalization)
  Sender: FDA-Public Use
  Company Number: None

PATIENT
  Age: 7 Month
  Sex: Male
  Weight: 7.5 kg

DRUGS (6)
  1. SODIUM THIOSULFATE [Concomitant]
     Active Substance: SODIUM THIOSULFATE
  2. VINCRISTINE SULFATE. [Suspect]
     Active Substance: VINCRISTINE SULFATE
     Dates: end: 20200709
  3. 5?FLUOROURACIL (5?FU) [Suspect]
     Active Substance: FLUOROURACIL
     Dates: end: 20200704
  4. DOXORUBICIN HYDROCHLORIDE. [Suspect]
     Active Substance: DOXORUBICIN HYDROCHLORIDE
     Dates: end: 20200704
  5. ZINECARD [Suspect]
     Active Substance: DEXRAZOXANE HYDROCHLORIDE
     Dates: end: 20200704
  6. CISPLATIN. [Suspect]
     Active Substance: CISPLATIN
     Dates: end: 20200703

REACTIONS (17)
  - Enterocolitis infectious [None]
  - Agitation [None]
  - White blood cell count decreased [None]
  - Blood chloride increased [None]
  - Blood creatine decreased [None]
  - Clinical trial participant [None]
  - Urine output decreased [None]
  - Haematocrit decreased [None]
  - Carbon dioxide decreased [None]
  - Dermatitis diaper [None]
  - Neutrophil count decreased [None]
  - Blood potassium decreased [None]
  - Platelet count decreased [None]
  - Blood sodium decreased [None]
  - Clostridium difficile colitis [None]
  - Hypophagia [None]
  - Abdominal distension [None]

NARRATIVE: CASE EVENT DATE: 20200709
